FAERS Safety Report 10093527 (Version 1)
Quarter: 2014Q2

REPORT INFORMATION
  Report Type: Spontaneous
  Country: US (occurrence: US)
  Receive Date: 20140421
  Receipt Date: 20140421
  Transmission Date: 20141212
  Serious: No
  Sender: FDA-Public Use
  Company Number: US-SA-2014SA019373

PATIENT
  Age: 75 Year
  Sex: Female

DRUGS (3)
  1. ALLEGRA [Suspect]
     Indication: RHINITIS
     Dosage: TAKEN FROM-2 WEEKS AGO
     Route: 048
     Dates: end: 20140213
  2. CLARITIN [Suspect]
     Indication: RHINITIS
     Route: 065
  3. SINGULAIR [Suspect]
     Indication: RHINITIS
     Route: 065

REACTIONS (1)
  - Drug ineffective [Unknown]
